FAERS Safety Report 6812997-0 (Version None)
Quarter: 2010Q3

REPORT INFORMATION
  Report Type: 
  Country: None (occurrence: None)
  Receive Date: 20100701
  Receipt Date: 20100625
  Transmission Date: 20110219
  Serious: Yes (Other)
  Sender: FDA-Public Use
  Company Number: JP-PFIZER INC-2010079828

PATIENT

DRUGS (2)
  1. SALAZOPYRIN [Suspect]
     Dosage: UNK
     Route: 054
  2. VOLTAREN [Suspect]
     Dosage: UNK
     Route: 054

REACTIONS (1)
  - HAEMORRHAGE [None]
